FAERS Safety Report 6519978-5 (Version None)
Quarter: 2009Q4

REPORT INFORMATION
  Report Type: 
  Country: None (occurrence: None)
  Receive Date: 20091229
  Receipt Date: 20091221
  Transmission Date: 20100525
  Serious: Yes (Death, Hospitalization, Other)
  Sender: FDA-Public Use
  Company Number: US-PURDUE-USA-2009-0040976

PATIENT
  Sex: Male

DRUGS (13)
  1. OXYCONTIN [Suspect]
     Indication: PAIN
     Dosage: UNK
     Route: 048
     Dates: start: 20030101, end: 20091016
  2. FENTANYL-100 [Suspect]
     Indication: NEUROPATHY PERIPHERAL
     Dosage: 50 MCG, UNK
     Route: 062
     Dates: start: 20091017, end: 20091020
  3. METOPROLOL TARTRATE [Suspect]
     Indication: BLOOD PRESSURE
     Dosage: 50 MG, BID
     Route: 048
     Dates: start: 20090801, end: 20091019
  4. HYDROCODONE BITARTRATE [Suspect]
     Indication: PAIN
     Dosage: 6 TABLET, DAILY
     Route: 048
     Dates: start: 20091017, end: 20091020
  5. AMBIEN [Suspect]
     Indication: INSOMNIA
     Dosage: 1 TABLET, PRN
     Route: 048
     Dates: start: 20090101, end: 20091020
  6. BETAMETHASONE [Suspect]
     Indication: NEUROPATHY PERIPHERAL
     Dosage: 50 UNK, UNK
     Route: 061
     Dates: start: 20091016, end: 20091016
  7. AMMONIUM LACTATE [Suspect]
     Indication: NEUROPATHY PERIPHERAL
     Dosage: 400 UNK, BID
     Route: 061
     Dates: start: 20091019, end: 20091019
  8. UROXATRAL [Suspect]
     Indication: MICTURITION DISORDER
     Dosage: 10 MG, DAILY
     Route: 048
     Dates: start: 20000201, end: 20091019
  9. NOVALAC [Suspect]
     Indication: DIABETES MELLITUS
     Dosage: 15 G, TID
     Route: 058
     Dates: start: 20070101, end: 20091019
  10. LANTUS [Suspect]
     Indication: DIABETES MELLITUS
     Dosage: 25 G, DAILY
     Route: 058
     Dates: start: 20070101, end: 20091019
  11. WARFARIN SODIUM [Suspect]
     Indication: DRUG USE FOR UNKNOWN INDICATION
     Dosage: UNK
     Dates: start: 20060101, end: 20091019
  12. CYMBALTA [Suspect]
     Indication: INSOMNIA
     Dosage: 60 MG, DAILY
     Route: 048
     Dates: end: 20091019
  13. DIPROLENT [Suspect]
     Indication: DRUG USE FOR UNKNOWN INDICATION
     Dosage: UNK
     Dates: end: 20091019

REACTIONS (11)
  - ABNORMAL BEHAVIOUR [None]
  - ANEURYSM RUPTURED [None]
  - BRAIN DEATH [None]
  - COAGULOPATHY [None]
  - COLD SWEAT [None]
  - FALL [None]
  - HAEMORRHAGIC STROKE [None]
  - HYPERTENSION [None]
  - INSOMNIA [None]
  - MALAISE [None]
  - RESPIRATORY ARREST [None]
